FAERS Safety Report 8620043-1 (Version None)
Quarter: 2012Q3

REPORT INFORMATION
  Report Type: 
  Country: None (occurrence: None)
  Receive Date: 20120817
  Receipt Date: 20120817
  Transmission Date: 20120928
  Serious: No
  Sender: FDA-Public Use
  Company Number: None

PATIENT
  Sex: Male

DRUGS (1)
  1. BRENTUXIMAB VEDOTIN [Suspect]
     Dosage: 200 MG ONE TIME DOSE
     Route: 042

REACTIONS (3)
  - DYSPNOEA [None]
  - SINUS CONGESTION [None]
  - COUGH [None]
